FAERS Safety Report 4824370-5 (Version None)
Quarter: 2005Q4

REPORT INFORMATION
  Report Type: 
  Country: None (occurrence: None)
  Receive Date: 20051108
  Receipt Date: 20051025
  Transmission Date: 20060501
  Serious: Yes (Hospitalization)
  Sender: FDA-Public Use
  Company Number: USA0510111796

PATIENT
  Age: 19 Year
  Sex: Female
  Weight: 48 kg

DRUGS (3)
  1. STRATTERA [Suspect]
     Indication: ATTENTION DEFICIT/HYPERACTIVITY DISORDER
     Dosage: 40 MG DAY
     Dates: start: 20040401
  2. KLONOPIN [Concomitant]
  3. ALLERGY PILLS [Concomitant]

REACTIONS (2)
  - SELF-INJURIOUS IDEATION [None]
  - SUICIDAL IDEATION [None]
